FAERS Safety Report 15365164 (Version 2)
Quarter: 2022Q4

REPORT INFORMATION
  Report Type: Spontaneous
  Country: US (occurrence: US)
  Receive Date: 20180910
  Receipt Date: 20221121
  Transmission Date: 20230112
  Serious: Yes (Other)
  Sender: FDA-Public Use
  Company Number: US-009507513-1809USA002521

PATIENT
  Sex: Female

DRUGS (4)
  1. DIFICID [Suspect]
     Active Substance: FIDAXOMICIN
     Indication: Clostridium difficile infection
     Dosage: UNK; ON AND OFF FOR ABOUT 6 YEARS
     Route: 048
     Dates: start: 2011, end: 2017
  2. VANCOMYCIN [Suspect]
     Active Substance: VANCOMYCIN
  3. DIOVAN [Concomitant]
     Active Substance: VALSARTAN
     Dosage: UNK
  4. FLAGYL [Concomitant]
     Active Substance: METRONIDAZOLE\METRONIDAZOLE HYDROCHLORIDE
     Dosage: UNK

REACTIONS (6)
  - Clostridium difficile infection [Unknown]
  - Diverticulitis [Unknown]
  - Hiatus hernia [Unknown]
  - Adiposis dolorosa [Unknown]
  - Hypoacusis [Unknown]
  - Therapeutic product effect incomplete [Recovered/Resolved]
